FAERS Safety Report 23059293 (Version 1)
Quarter: 2023Q4

REPORT INFORMATION
  Report Type: Spontaneous
  Country: FR (occurrence: FR)
  Receive Date: 20231012
  Receipt Date: 20231012
  Transmission Date: 20240109
  Serious: Yes (Other)
  Sender: FDA-Public Use
  Company Number: FR-Zuellig Korea-ATNAHS20231002979

PATIENT
  Age: 53 Year
  Sex: Female

DRUGS (10)
  1. VALIUM [Suspect]
     Active Substance: DIAZEPAM
     Indication: Product used for unknown indication
     Dosage: IRREGULAR CONSUMPTION OF SEVERAL TABLETS AT ONCE
     Route: 050
     Dates: start: 2021
  2. BROMAZEPAM [Suspect]
     Active Substance: BROMAZEPAM
     Indication: Back pain
     Dosage: UP TO 18MG/INTAKE
     Route: 050
  3. MORPHINE SULFATE [Suspect]
     Active Substance: MORPHINE SULFATE
     Indication: Back pain
     Dosage: REGULAR OVERCONSUMPTION (DOUBLE TO TRIPLE THE DOSAGE)
     Route: 050
  4. MORPHINE SULFATE [Suspect]
     Active Substance: MORPHINE SULFATE
     Indication: Analgesic therapy
     Dosage: PRESCRIPTION OF 80 MG LI AND 20 MG LP/D(REGULAR OVERCONSUMPTION)
     Route: 050
     Dates: start: 2013
  5. MORPHINE SULFATE [Suspect]
     Active Substance: MORPHINE SULFATE
     Indication: Anxiety
  6. PAROXETINE [Concomitant]
     Active Substance: PAROXETINE
     Indication: Back pain
     Dosage: UNK
  7. DULOXETINE [Concomitant]
     Active Substance: DULOXETINE
     Indication: Back pain
     Dosage: UNK
  8. GABAPENTIN [Concomitant]
     Active Substance: GABAPENTIN
     Indication: Back pain
     Dosage: UNK
  9. NEFOPAM [Concomitant]
     Active Substance: NEFOPAM
     Indication: Back pain
     Dosage: UNK
  10. IRBESARTAN [Concomitant]
     Active Substance: IRBESARTAN
     Indication: Back pain
     Dosage: UNK

REACTIONS (10)
  - Dizziness [Unknown]
  - Aggression [Unknown]
  - Drug use disorder [Not Recovered/Not Resolved]
  - Delirium [Unknown]
  - Cold-stimulus headache [Unknown]
  - Product use in unapproved indication [Not Recovered/Not Resolved]
  - Drug dependence [Not Recovered/Not Resolved]
  - Euphoric mood [Unknown]
  - Cyanosis [Unknown]
  - Hallucinations, mixed [Unknown]
